FAERS Safety Report 6608277-9 (Version None)
Quarter: 2010Q1

REPORT INFORMATION
  Report Type: 
  Country: None (occurrence: None)
  Receive Date: 20100301
  Receipt Date: 20100216
  Transmission Date: 20100710
  Serious: Yes (Hospitalization)
  Sender: FDA-Public Use
  Company Number: US-ROCHE-686547

PATIENT
  Sex: Female
  Weight: 58.5 kg

DRUGS (1)
  1. CAPECITABINE [Suspect]
     Indication: COLORECTAL CANCER
     Dosage: 3 TABS AM (IN MORNING); 2 TABS PM (AT NIGHT)
     Route: 048
     Dates: start: 20090919, end: 20100216

REACTIONS (3)
  - SCREAMING [None]
  - THROMBOSIS [None]
  - TRANSIENT ISCHAEMIC ATTACK [None]
